FAERS Safety Report 8328465-3 (Version None)
Quarter: 2012Q2

REPORT INFORMATION
  Report Type: 
  Country: None (occurrence: None)
  Receive Date: 20120502
  Receipt Date: 20120502
  Transmission Date: 20120825
  Serious: Yes (Death)
  Sender: FDA-Public Use
  Company Number: None

PATIENT
  Age: 67 Year
  Sex: Female
  Weight: 53.07 kg

DRUGS (4)
  1. VASOPRESSIN [Concomitant]
  2. AMINOCAPROIC ACID [Concomitant]
  3. NOVOSEVEN [Suspect]
     Indication: PULMONARY ALVEOLAR HAEMORRHAGE
     Dosage: |DOSAGETEXT: 5000 MICROGRAMS||STRENGTH: 1000 MICROGRAMS PER 1 ML VIAL||FREQ: ONE||ROUTE: INTRAVENOUS
     Route: 040
     Dates: start: 20120223, end: 20120223
  4. EPSILON [Concomitant]

REACTIONS (9)
  - BRAIN HERNIATION [None]
  - UNRESPONSIVE TO STIMULI [None]
  - TACHYCARDIA [None]
  - BRAIN DEATH [None]
  - CEREBRAL INFARCTION [None]
  - CEREBRAL THROMBOSIS [None]
  - HYPERTENSION [None]
  - PLATELET AGGREGATION [None]
  - CEREBELLAR INFARCTION [None]
